FAERS Safety Report 16104184 (Version 6)
Quarter: 2019Q4

REPORT INFORMATION
  Report Type: Spontaneous
  Country: US (occurrence: US)
  Receive Date: 20190322
  Receipt Date: 20191114
  Transmission Date: 20200122
  Serious: No
  Sender: FDA-Public Use
  Company Number: US-PFIZER INC-2019121383

PATIENT
  Age: 39 Year
  Sex: Female
  Weight: 92.99 kg

DRUGS (5)
  1. SOMAVERT [Suspect]
     Active Substance: PEGVISOMANT
     Indication: ACROMEGALY
     Dosage: 40 MG, ONE DOSE/LOADING DOSE
     Route: 058
     Dates: start: 20190313, end: 20190313
  2. SOMAVERT [Suspect]
     Active Substance: PEGVISOMANT
     Indication: GIGANTISM
     Dosage: 10 MG, 1X/DAY,(10MG BY INJECTION ONCE DAILY)
     Dates: start: 20190312
  3. SOMAVERT [Suspect]
     Active Substance: PEGVISOMANT
     Dosage: 10 MG, DAILY
     Route: 048
     Dates: start: 20190313
  4. SOMAVERT [Suspect]
     Active Substance: PEGVISOMANT
     Dosage: 10 MG, 4 TIMES PER WEEK (SATURDAY, SUNDAY, WEDNESDAY AND THURSDAY)
     Route: 058
     Dates: start: 20190920, end: 20190926
  5. SOMAVERT [Suspect]
     Active Substance: PEGVISOMANT
     Dosage: 10 MG, 4 DAYS PER WEEK
     Route: 048
     Dates: start: 20190830

REACTIONS (5)
  - Nausea [Unknown]
  - Feeling abnormal [Unknown]
  - Product use issue [Unknown]
  - Off label use [Unknown]
  - Contusion [Recovering/Resolving]

NARRATIVE: CASE EVENT DATE: 20190313
